FAERS Safety Report 7255236-1 (Version None)
Quarter: 2011Q1

REPORT INFORMATION
  Report Type: 
  Country: None (occurrence: None)
  Receive Date: 20110129
  Receipt Date: 20100219
  Transmission Date: 20110831
  Serious: No
  Sender: FDA-Public Use
  Company Number: US-ABBOTT-10P-163-0628490-00

PATIENT
  Sex: Male

DRUGS (1)
  1. HUMIRA [Suspect]
     Indication: PSORIASIS
     Dosage: TOOK 3 DOSES, NO LOADING DOSE,
     Route: 058
     Dates: start: 20100101

REACTIONS (4)
  - DRUG INEFFECTIVE [None]
  - MEDICATION ERROR [None]
  - ARTHRALGIA [None]
  - PRURITUS [None]
